FAERS Safety Report 13907887 (Version 1)
Quarter: 2017Q3

REPORT INFORMATION
  Report Type: Spontaneous
  Country: US (occurrence: US)
  Receive Date: 20170825
  Receipt Date: 20170825
  Transmission Date: 20171127
  Serious: No
  Sender: FDA-Public Use
  Company Number: US-ROCHE-1118488

PATIENT
  Sex: Male
  Weight: 108 kg

DRUGS (1)
  1. NUTROPIN [Suspect]
     Active Substance: SOMATROPIN
     Indication: HYPOPITUITARISM
     Dosage: DILUTE WITH 2.5ML, DOSE PER INJECTION: 0.15ML
     Route: 058
     Dates: start: 200006

REACTIONS (2)
  - Pain [Not Recovered/Not Resolved]
  - Depression [Unknown]
